FAERS Safety Report 23092663 (Version 1)
Quarter: 2023Q4

REPORT INFORMATION
  Report Type: Spontaneous
  Country: PL (occurrence: PL)
  Receive Date: 20231021
  Receipt Date: 20231021
  Transmission Date: 20240110
  Serious: Yes (Other)
  Sender: FDA-Public Use
  Company Number: PL-JNJFOC-20230637347

PATIENT
  Age: 73 Year

DRUGS (5)
  1. LENALIDOMIDE [Suspect]
     Active Substance: LENALIDOMIDE
     Indication: Plasma cell myeloma
     Dates: start: 20230216
  2. LENALIDOMIDE [Suspect]
     Active Substance: LENALIDOMIDE
     Dates: start: 20221025
  3. DEXAMETHASONE [Suspect]
     Active Substance: DEXAMETHASONE
     Indication: Plasma cell myeloma
     Dates: start: 20230216
  4. DEXAMETHASONE [Suspect]
     Active Substance: DEXAMETHASONE
     Dosage: UNIT DOSE : 40 MG
     Dates: start: 20221025
  5. DARZALEX [Suspect]
     Active Substance: DARATUMUMAB
     Indication: Plasma cell myeloma
     Dosage: QW IN CYCLES 1-2, Q2W IN CYCLES 3-6 AND THEN Q4W UNTIL PD
     Dates: start: 20230216

REACTIONS (3)
  - Thrombocytopenia [Recovered/Resolved]
  - Cytopenia [Recovered/Resolved]
  - Neutropenia [Recovered/Resolved]
